FAERS Safety Report 19002055 (Version 1)
Quarter: 2021Q1

REPORT INFORMATION
  Report Type: Spontaneous
  Country: GB (occurrence: GB)
  Receive Date: 20210312
  Receipt Date: 20210312
  Transmission Date: 20210420
  Serious: Yes (Hospitalization)
  Sender: FDA-Public Use
  Company Number: GB-DEXPHARM-20210323

PATIENT
  Age: 69 Year
  Sex: Male

DRUGS (7)
  1. OMEPRAZOLE. [Suspect]
     Active Substance: OMEPRAZOLE
     Route: 048
  2. ADCAL?D3 [Concomitant]
     Active Substance: CALCIUM CARBONATE\CHOLECALCIFEROL
  3. ZOLADEX [Interacting]
     Active Substance: GOSERELIN ACETATE
     Dosage: 10.8 MG ADMINISTERED EVERY 12 WEEKS FOR THE LAST 9 MONTHS
     Route: 058
     Dates: end: 20210114
  4. RAMIPRIL. [Concomitant]
     Active Substance: RAMIPRIL
  5. PROVERA [Concomitant]
     Active Substance: MEDROXYPROGESTERONE ACETATE
     Indication: HOT FLUSH
  6. ASPIRIN. [Concomitant]
     Active Substance: ASPIRIN
  7. CLOPIDOGREL [Interacting]
     Active Substance: CLOPIDOGREL BISULFATE
     Indication: ANTICOAGULANT THERAPY

REACTIONS (5)
  - Drug ineffective [Unknown]
  - Drug interaction [Unknown]
  - Myocardial infarction [Unknown]
  - Arrhythmia [Unknown]
  - General physical condition abnormal [Unknown]
